FAERS Safety Report 5224827-1 (Version None)
Quarter: 2007Q1

REPORT INFORMATION
  Report Type: 
  Country: None (occurrence: None)
  Receive Date: 20070126
  Receipt Date: 20070118
  Transmission Date: 20070707
  Serious: Yes (Other)
  Sender: FDA-Public Use
  Company Number: WAES 0701USA03496

PATIENT
  Sex: 0

DRUGS (1)
  1. COSOPT [Suspect]
     Indication: DRUG USE FOR UNKNOWN INDICATION
     Dosage: OPHT
     Route: 047

REACTIONS (4)
  - EYE IRRITATION [None]
  - EYE PAIN [None]
  - FOREIGN BODY SENSATION IN EYES [None]
  - LACRIMATION INCREASED [None]
